FAERS Safety Report 7379158-0 (Version None)
Quarter: 2011Q1

REPORT INFORMATION
  Report Type: 
  Country: None (occurrence: None)
  Receive Date: 20110328
  Receipt Date: 20110323
  Transmission Date: 20110831
  Serious: Yes (Death, Other)
  Sender: FDA-Public Use
  Company Number: PHHY2010US20836

PATIENT
  Sex: Male
  Weight: 100 kg

DRUGS (1)
  1. EXJADE [Suspect]
     Indication: BLOOD DISORDER
     Dosage: 1500 MG, QD
     Route: 048
     Dates: start: 20090430, end: 20100302

REACTIONS (2)
  - RENAL IMPAIRMENT [None]
  - POST PROCEDURAL COMPLICATION [None]
